FAERS Safety Report 5132095-4 (Version None)
Quarter: 2006Q4

REPORT INFORMATION
  Report Type: 
  Country: None (occurrence: None)
  Receive Date: 20061017
  Receipt Date: 20061013
  Transmission Date: 20070319
  Serious: No
  Sender: FDA-Public Use
  Company Number: E2020-00579-SPO-US

PATIENT
  Sex: Female

DRUGS (2)
  1. ARICEPT [Suspect]
     Indication: DRUG USE FOR UNKNOWN INDICATION
  2. OSTEOPOROSIS MEDICATION [Concomitant]

REACTIONS (2)
  - HYPERSENSITIVITY [None]
  - RESPIRATORY DISORDER [None]
